FAERS Safety Report 11047845 (Version 1)
Quarter: 2015Q2

REPORT INFORMATION
  Report Type: Spontaneous
  Country: US (occurrence: US)
  Receive Date: 20150420
  Receipt Date: 20150420
  Transmission Date: 20150821
  Serious: No
  Sender: FDA-Public Use
  Company Number: US-BIOGENIDEC-2015BI039890

PATIENT
  Age: 48 Year
  Sex: Female

DRUGS (1)
  1. AVONEX [Suspect]
     Active Substance: INTERFERON BETA-1A
     Indication: MULTIPLE SCLEROSIS
     Route: 030
     Dates: start: 20051130, end: 201501

REACTIONS (10)
  - General symptom [Recovered/Resolved]
  - Ill-defined disorder [Not Recovered/Not Resolved]
  - Colonoscopy [Recovered/Resolved]
  - Endoscopy [Recovered/Resolved]
  - Flatulence [Recovered/Resolved]
  - Ultrasound scan [Recovered/Resolved]
  - Nasopharyngitis [Recovered/Resolved]
  - Fear [Unknown]
  - Feeling abnormal [Recovered/Resolved]
  - Therapy cessation [Not Recovered/Not Resolved]

NARRATIVE: CASE EVENT DATE: 201501
